FAERS Safety Report 13741760 (Version 1)
Quarter: 2017Q3

REPORT INFORMATION
  Report Type: Spontaneous
  Country: US (occurrence: US)
  Receive Date: 20170711
  Receipt Date: 20170711
  Transmission Date: 20171127
  Serious: No
  Sender: FDA-Public Use
  Company Number: None

PATIENT
  Age: 18 Year
  Sex: Female

DRUGS (1)
  1. NEXPLANON [Suspect]
     Active Substance: ETONOGESTREL
     Indication: CONTRACEPTION
     Dates: start: 20170201, end: 20170501

REACTIONS (3)
  - Pruritus generalised [None]
  - Vomiting [None]
  - Galactorrhoea [None]

NARRATIVE: CASE EVENT DATE: 20170501
